FAERS Safety Report 9591922 (Version 3)
Quarter: 2014Q1

REPORT INFORMATION
  Report Type: Spontaneous
  Country: US (occurrence: US)
  Receive Date: 20131004
  Receipt Date: 20140303
  Transmission Date: 20141002
  Serious: No
  Sender: FDA-Public Use
  Company Number: US-AMGEN-USASP2012080373

PATIENT
  Age: 61 Year
  Sex: Female
  Weight: 108.84 kg

DRUGS (4)
  1. ENBREL [Suspect]
     Indication: RHEUMATOID ARTHRITIS
     Dosage: 50 MG, EVERY 5 DAYS
     Route: 058
     Dates: start: 20120301, end: 201307
  2. METHOTREXATE [Suspect]
     Indication: PRODUCT USED FOR UNKNOWN INDICATION
     Dosage: UNK
     Route: 065
     Dates: end: 201301
  3. MINOCYCLINE [Concomitant]
     Dosage: UNK, 2 TABLETS TWICE DAILY
     Dates: start: 201301
  4. PLAQUENIL                          /00072602/ [Concomitant]
     Dosage: 400 MG, QD
     Dates: start: 201301

REACTIONS (17)
  - Musculoskeletal stiffness [Not Recovered/Not Resolved]
  - Pain [Not Recovered/Not Resolved]
  - Discomfort [Not Recovered/Not Resolved]
  - Mobility decreased [Not Recovered/Not Resolved]
  - Pain in extremity [Not Recovered/Not Resolved]
  - Arthropathy [Not Recovered/Not Resolved]
  - Back disorder [Not Recovered/Not Resolved]
  - Joint lock [Not Recovered/Not Resolved]
  - Musculoskeletal pain [Not Recovered/Not Resolved]
  - Arthralgia [Not Recovered/Not Resolved]
  - Liver function test abnormal [Not Recovered/Not Resolved]
  - Local swelling [Recovered/Resolved]
  - Fluid retention [Recovered/Resolved]
  - Inflammation [Unknown]
  - Musculoskeletal discomfort [Unknown]
  - Fungal infection [Not Recovered/Not Resolved]
  - Injection site pain [Not Recovered/Not Resolved]
